FAERS Safety Report 6903778-8 (Version None)
Quarter: 2010Q3

REPORT INFORMATION
  Report Type: 
  Country: None (occurrence: None)
  Receive Date: 20100804
  Receipt Date: 20081211
  Transmission Date: 20110219
  Serious: No
  Sender: FDA-Public Use
  Company Number: US-PFIZER INC-2008152753

PATIENT
  Sex: Male
  Weight: 89.8 kg

DRUGS (5)
  1. LYRICA [Suspect]
     Indication: FIBROMYALGIA
     Dosage: 100 MG, 3X/DAY
     Dates: start: 20081209
  2. LOPERAMIDE HYDROCHLORIDE [Concomitant]
     Dosage: UNK
  3. CARTIA XT [Concomitant]
     Dosage: UNK
  4. VITAMIN B12 FOR INJECTION [Concomitant]
     Dosage: UNK
  5. DARVOCET [Concomitant]
     Dosage: UNK

REACTIONS (1)
  - ENERGY INCREASED [None]
